FAERS Safety Report 9245999 (Version 1)
Quarter: 2013Q2

REPORT INFORMATION
  Report Type: Spontaneous
  Country: US (occurrence: US)
  Receive Date: 20130422
  Receipt Date: 20130422
  Transmission Date: 20140414
  Serious: No
  Sender: FDA-Public Use
  Company Number: US-BAYER-2013-049918

PATIENT
  Sex: 0

DRUGS (3)
  1. ALEVE CAPLET [Suspect]
     Dosage: UNK UNK, QD
     Route: 048
  2. IBUPROFEN [Concomitant]
  3. TYLENOL [PARACETAMOL] [Concomitant]
     Dosage: 4 UNK, UNK

REACTIONS (1)
  - Incorrect dose administered [None]
